FAERS Safety Report 18924741 (Version 1)
Quarter: 2021Q1

REPORT INFORMATION
  Report Type: Spontaneous
  Country: US (occurrence: US)
  Receive Date: 20210222
  Receipt Date: 20210222
  Transmission Date: 20210420
  Serious: No
  Sender: FDA-Public Use
  Company Number: US-PERRIGO-20US015757

PATIENT
  Age: 63 Year
  Sex: Male
  Weight: 102.04 kg

DRUGS (1)
  1. TESTOSTERONE CYPIONATE. [Suspect]
     Active Substance: TESTOSTERONE CYPIONATE
     Indication: BLOOD TESTOSTERONE DECREASED
     Dosage: 200 MG, EVERY 7 DAYS
     Route: 030
     Dates: start: 202007, end: 202009

REACTIONS (4)
  - Inappropriate schedule of product administration [Recovered/Resolved]
  - Drug ineffective [Unknown]
  - Product administered at inappropriate site [Recovered/Resolved]
  - Feeling abnormal [Recovered/Resolved]

NARRATIVE: CASE EVENT DATE: 202007
